FAERS Safety Report 10067226 (Version 1)
Quarter: 2014Q2

REPORT INFORMATION
  Report Type: Spontaneous
  Country: US (occurrence: None)
  Receive Date: 20140408
  Receipt Date: 20140408
  Transmission Date: 20141212
  Serious: Yes (Other)
  Sender: FDA-Public Use
  Company Number: None

PATIENT
  Age: 51 Year
  Sex: Female
  Weight: 89.81 kg

DRUGS (2)
  1. AMBIEN [Suspect]
     Indication: SLEEP DISORDER THERAPY
     Dosage: 1 NIGHT??1 PILL
     Route: 048
  2. AMBIEN [Suspect]
     Dosage: 1 NIGHT??1 PILL
     Route: 048

REACTIONS (8)
  - Insomnia [None]
  - Dyspnoea [None]
  - Dizziness [None]
  - Confusional state [None]
  - Morbid thoughts [None]
  - Agitation [None]
  - Thinking abnormal [None]
  - Decreased appetite [None]
